FAERS Safety Report 6942991-0 (Version None)
Quarter: 2010Q3

REPORT INFORMATION
  Report Type: 
  Country: None (occurrence: None)
  Receive Date: 20100826
  Receipt Date: 20100817
  Transmission Date: 20110219
  Serious: Yes (Other)
  Sender: FDA-Public Use
  Company Number: US-JNJFOC-20100805964

PATIENT
  Sex: Female
  Weight: 58.97 kg

DRUGS (5)
  1. REMICADE [Suspect]
     Indication: CROHN'S DISEASE
     Route: 042
  2. REMICADE [Suspect]
     Route: 042
  3. TOPROL-XL [Concomitant]
  4. ZYRTEC [Concomitant]
  5. AMBIEN [Concomitant]

REACTIONS (6)
  - ABDOMINAL PAIN UPPER [None]
  - ARTHRALGIA [None]
  - INFLUENZA LIKE ILLNESS [None]
  - NAUSEA [None]
  - NEURALGIA [None]
  - WEIGHT DECREASED [None]
